FAERS Safety Report 10170127 (Version 1)
Quarter: 2014Q2

REPORT INFORMATION
  Report Type: Spontaneous
  Country: IT (occurrence: IT)
  Receive Date: 20140513
  Receipt Date: 20140513
  Transmission Date: 20141212
  Serious: Yes (Other)
  Sender: FDA-Public Use
  Company Number: IT-TEVA-479138ISR

PATIENT
  Age: 81 Year
  Sex: Male

DRUGS (1)
  1. OLANZAPINA TEVA 10 MG [Suspect]
     Indication: PARANOID PERSONALITY DISORDER
     Dosage: 10 MILLIGRAM DAILY;
     Route: 048
     Dates: start: 20140201

REACTIONS (3)
  - Drug ineffective [Recovered/Resolved]
  - Delusion [Recovered/Resolved]
  - Product substitution issue [Recovered/Resolved]
